FAERS Safety Report 6457557-9 (Version None)
Quarter: 2009Q4

REPORT INFORMATION
  Report Type: 
  Country: None (occurrence: None)
  Receive Date: 20091125
  Receipt Date: 20091118
  Transmission Date: 20100525
  Serious: Yes (Other)
  Sender: FDA-Public Use
  Company Number: PHHY2009BR50739

PATIENT
  Sex: Female

DRUGS (2)
  1. RITALIN [Suspect]
     Dosage: 30 MG, UNK
  2. RITALIN [Suspect]
     Dosage: 20 MG, UNK

REACTIONS (4)
  - CONFUSIONAL STATE [None]
  - DRY MOUTH [None]
  - TACHYCARDIA [None]
  - TREMOR [None]
